FAERS Safety Report 4415278-8 (Version None)
Quarter: 2004Q3

REPORT INFORMATION
  Report Type: 
  Country: None (occurrence: None)
  Receive Date: 20040730
  Receipt Date: 20040719
  Transmission Date: 20050211
  Serious: Yes (Death, Hospitalization)
  Sender: FDA-Public Use
  Company Number: 04P-167-0266756-00

PATIENT
  Age: 49 Year
  Sex: Male

DRUGS (5)
  1. KLARICID XL (BIAXIN XL) (CLARITHROMYCIN) (CLARITHROMYCIN) [Suspect]
     Indication: LOWER RESPIRATORY TRACT INFECTION
  2. VALSARTAN [Concomitant]
  3. AMLODIPINE [Concomitant]
  4. BENDROFLUMETHIAZIDE [Concomitant]
  5. ALLOPURINOL [Concomitant]

REACTIONS (5)
  - DISSEMINATED INTRAVASCULAR COAGULATION [None]
  - HYPERSENSITIVITY [None]
  - MULTI-ORGAN FAILURE [None]
  - PNEUMONIA [None]
  - STEVENS-JOHNSON SYNDROME [None]
